FAERS Safety Report 15161063 (Version 1)
Quarter: 2018Q3

REPORT INFORMATION
  Report Type: Spontaneous
  Country: US (occurrence: US)
  Receive Date: 20180718
  Receipt Date: 20180718
  Transmission Date: 20181010
  Serious: No
  Sender: FDA-Public Use
  Company Number: US-JAZZ-2018-US-007114

PATIENT
  Age: 48 Year
  Sex: Female

DRUGS (1)
  1. XYREM [Suspect]
     Active Substance: SODIUM OXYBATE
     Indication: PRODUCT USED FOR UNKNOWN INDICATION
     Dosage: UNKNOWN DOSE
     Route: 048

REACTIONS (5)
  - Agitation [Recovered/Resolved]
  - Irritability [Recovered/Resolved]
  - Extra dose administered [Unknown]
  - Lethargy [Recovered/Resolved]
  - Somnolence [Recovered/Resolved]
